FAERS Safety Report 7909391-8 (Version None)
Quarter: 2011Q4

REPORT INFORMATION
  Report Type: 
  Country: None (occurrence: None)
  Receive Date: 20111111
  Receipt Date: 20111103
  Transmission Date: 20120403
  Serious: Yes (Other)
  Sender: FDA-Public Use
  Company Number: TR-US-EMD SERONO, INC.-7093741

PATIENT
  Sex: Female
  Weight: 53 kg

DRUGS (3)
  1. REBIF [Suspect]
     Indication: RELAPSING-REMITTING MULTIPLE SCLEROSIS
     Route: 058
     Dates: start: 20071101
  2. IBRUPROFEN [Concomitant]
     Indication: PAIN
     Route: 048
     Dates: start: 20111001
  3. SERTRALINE HYDROCHLORIDE [Concomitant]
     Indication: DEPRESSION
     Route: 048
     Dates: start: 20070101

REACTIONS (2)
  - EAR INFECTION FUNGAL [None]
  - ASTHENIA [None]
